FAERS Safety Report 4621794-6 (Version None)
Quarter: 2005Q1

REPORT INFORMATION
  Report Type: 
  Country: None (occurrence: None)
  Receive Date: 20050329
  Receipt Date: 20050111
  Transmission Date: 20050727
  Serious: Yes (Disabling)
  Sender: FDA-Public Use
  Company Number: US-ROCHE-391919

PATIENT
  Age: 50 Year
  Sex: Male

DRUGS (4)
  1. PEG-INTERFERON ALFA 2A (RO 25-8310) [Suspect]
     Route: 058
     Dates: start: 20041012, end: 20041214
  2. RIBAVIRIN [Suspect]
     Route: 048
     Dates: start: 20041012, end: 20041214
  3. HYDROCHLOROTHIAZIDE [Concomitant]
     Indication: HYPERTENSION
     Dates: start: 20041028, end: 20041211
  4. IBUPROFEN [Concomitant]
     Indication: HEADACHE
     Dates: start: 20041206, end: 20041206

REACTIONS (8)
  - CROHN'S DISEASE [None]
  - DUODENITIS [None]
  - GASTROINTESTINAL INFLAMMATION [None]
  - GRAM STAIN POSITIVE [None]
  - HIATUS HERNIA [None]
  - HYPERAEMIA [None]
  - INFLAMMATORY BOWEL DISEASE [None]
  - PORTAL HYPERTENSIVE GASTROPATHY [None]
